FAERS Safety Report 8807849 (Version 2)
Quarter: 2012Q4

REPORT INFORMATION
  Report Type: 
  Country: JP (occurrence: JP)
  Receive Date: 20120925
  Receipt Date: 20121003
  Transmission Date: 20130627
  Serious: No
  Sender: FDA-Public Use
  Company Number: JP-GLAXOSMITHKLINE-B0826819A

PATIENT
  Age: 1 Year
  Sex: Male
  Weight: 9.3 kg

DRUGS (5)
  1. VALTREX [Suspect]
     Indication: INFECTION PROPHYLAXIS
     Dosage: 24MGK Three times per day
     Route: 048
     Dates: start: 20120820, end: 20120829
  2. MYCOSYST [Concomitant]
     Indication: INFECTION PROPHYLAXIS
     Dosage: 45MG Per day
     Route: 048
     Dates: start: 20120419
  3. BAKTAR [Concomitant]
     Indication: INFECTION PROPHYLAXIS
     Dosage: .225MG Twice per day
     Route: 048
     Dates: start: 20120419
  4. GLYCYRON [Concomitant]
     Indication: PROPHYLAXIS
     Dosage: .33MG Per day
     Route: 048
     Dates: start: 20120627
  5. ALLOPURINOL [Concomitant]
     Indication: PROPHYLAXIS
     Dosage: 44MG Twice per day
     Route: 048
     Dates: start: 20120417, end: 20120820

REACTIONS (7)
  - Hepatic function abnormal [Recovered/Resolved]
  - Aspartate aminotransferase increased [Unknown]
  - Blood alkaline phosphatase increased [Unknown]
  - Blood lactate dehydrogenase increased [Unknown]
  - Gamma-glutamyltransferase increased [Unknown]
  - Leucine aminopeptidase increased [Unknown]
  - Alanine aminotransferase increased [Unknown]
